FAERS Safety Report 18641735 (Version 1)
Quarter: 2020Q4

REPORT INFORMATION
  Report Type: Spontaneous
  Country: RU (occurrence: RU)
  Receive Date: 20201221
  Receipt Date: 20201221
  Transmission Date: 20210114
  Serious: Yes (Death, Life-Threatening, Other)
  Sender: FDA-Public Use
  Company Number: NVSC2020RU337738

PATIENT
  Age: 56 Year
  Sex: Female

DRUGS (1)
  1. MIDOSTAURIN [Suspect]
     Active Substance: MIDOSTAURIN
     Indication: PRODUCT USED FOR UNKNOWN INDICATION
     Dosage: 100 MG, QD
     Route: 048

REACTIONS (5)
  - Pericardial effusion [Fatal]
  - Sepsis [Unknown]
  - Mucosal inflammation [Unknown]
  - Cardiac arrest [Fatal]
  - Diarrhoea [Unknown]
